FAERS Safety Report 4880876-4 (Version None)
Quarter: 2005Q4

REPORT INFORMATION
  Report Type: 
  Country: None (occurrence: None)
  Receive Date: 20051223
  Receipt Date: 20051102
  Transmission Date: 20060501
  Serious: No
  Sender: FDA-Public Use
  Company Number: 05P-163-0316153-00

PATIENT
  Age: 71 Year
  Sex: Female
  Weight: 49.4421 kg

DRUGS (6)
  1. HUMIRA [Suspect]
     Indication: RHEUMATOID ARTHRITIS
     Dosage: 40 MG, 1 IN 2 WK, SUBCUTANEOUS
     Route: 058
     Dates: start: 20041214, end: 20050901
  2. HUMIRA [Suspect]
     Dosage: 40 MG, 1 IN 1 WK, SUBCUTANEOUS
     Route: 058
  3. METHOTREXATE [Concomitant]
  4. PREDNISONE [Concomitant]
  5. HUMAN MIXTARD [Concomitant]
  6. ACTOS [Concomitant]

REACTIONS (4)
  - ASTHENIA [None]
  - DIFFICULTY IN WALKING [None]
  - DYSPNOEA [None]
  - NERVOUSNESS [None]
